FAERS Safety Report 6379145-5 (Version None)
Quarter: 2009Q3

REPORT INFORMATION
  Report Type: 
  Country: None (occurrence: None)
  Receive Date: 20090923
  Receipt Date: 20090909
  Transmission Date: 20100115
  Serious: Yes (Hospitalization, Other)
  Sender: FDA-Public Use
  Company Number: DSA_34038_2009

PATIENT
  Sex: Female
  Weight: 62.2 kg

DRUGS (7)
  1. CARDIZEM LA [Suspect]
     Indication: HYPERTENSION
     Dosage: 180 MG ORAL
     Route: 048
     Dates: start: 20040617, end: 20040617
  2. LEXAPRO [Suspect]
     Indication: DEPRESSION
     Dosage: DF; FREQUENCY QD ORAL
     Route: 048
     Dates: start: 20040617, end: 20040101
  3. REMERON [Suspect]
     Indication: DRUG USE FOR UNKNOWN INDICATION
     Dosage: DF ORAL
     Route: 048
  4. VALIUM [Concomitant]
  5. BENICAR [Concomitant]
  6. TYLENOL (CAPLET) [Concomitant]
  7. ARTIFICIAL TEARS [Concomitant]

REACTIONS (24)
  - ABASIA [None]
  - ACIDOSIS [None]
  - APHASIA [None]
  - ARRHYTHMIA [None]
  - ARTERIOSCLEROSIS CORONARY ARTERY [None]
  - BLOOD POTASSIUM DECREASED [None]
  - DRY EYE [None]
  - ESSENTIAL HYPERTENSION [None]
  - FALL [None]
  - GRAND MAL CONVULSION [None]
  - HYPERSENSITIVITY [None]
  - HYPOKALAEMIA [None]
  - HYPONATRAEMIA [None]
  - IRON DEFICIENCY ANAEMIA [None]
  - LEFT VENTRICULAR HYPERTROPHY [None]
  - LOSS OF CONSCIOUSNESS [None]
  - MITRAL VALVE INCOMPETENCE [None]
  - PO2 DECREASED [None]
  - RENAL ARTERY ARTERIOSCLEROSIS [None]
  - SINUS TACHYCARDIA [None]
  - SWELLING [None]
  - SYNCOPE [None]
  - TRICUSPID VALVE INCOMPETENCE [None]
  - VISION BLURRED [None]
